FAERS Safety Report 9013459 (Version 1)
Quarter: 2013Q1

REPORT INFORMATION
  Report Type: Spontaneous
  Country: US (occurrence: US)
  Receive Date: 20130114
  Receipt Date: 20130114
  Transmission Date: 20140127
  Serious: Yes (Hospitalization, Other)
  Sender: FDA-Public Use
  Company Number: US-ASTRAZENECA-2013SE00971

PATIENT
  Age: 63 Year
  Sex: Female
  Weight: 67.1 kg

DRUGS (6)
  1. SEROQUEL XR [Suspect]
     Indication: BIPOLAR DISORDER
     Route: 048
     Dates: start: 2008
  2. SEROQUEL XR [Suspect]
     Indication: MANIA
     Route: 048
     Dates: start: 2008
  3. RISPIRADOL [Suspect]
     Route: 065
  4. LIPITOR [Concomitant]
     Indication: BLOOD CHOLESTEROL INCREASED
  5. PROZAC [Concomitant]
  6. LAMIXOGENE [Concomitant]

REACTIONS (4)
  - Cerebrovascular accident [Unknown]
  - Memory impairment [Unknown]
  - Speech disorder [Unknown]
  - Arterial disorder [Unknown]
